FAERS Safety Report 6170531-5 (Version None)
Quarter: 2009Q2

REPORT INFORMATION
  Report Type: 
  Country: None (occurrence: None)
  Receive Date: 20090428
  Receipt Date: 20090424
  Transmission Date: 20091009
  Serious: Yes (Hospitalization, Other)
  Sender: FDA-Public Use
  Company Number: PH-WYE-H04540008

PATIENT
  Sex: Female
  Weight: 52.5 kg

DRUGS (7)
  1. AMPICILLIN AND SULBACTAM [Suspect]
     Indication: SKIN INFECTION
     Route: 042
     Dates: start: 20080607, end: 20080609
  2. PARACETAMOL [Concomitant]
     Indication: PYREXIA
     Route: 042
     Dates: start: 20080609, end: 20080609
  3. CALCIUM [Concomitant]
     Indication: HYPOCALCAEMIA
     Route: 065
     Dates: start: 20080608, end: 20080609
  4. AMLODIPINE [Concomitant]
     Indication: HYPERTENSION
     Route: 065
     Dates: start: 20080609, end: 20080609
  5. METOPROLOL [Concomitant]
     Indication: HYPERTENSION
     Route: 065
     Dates: start: 20080609, end: 20080609
  6. PARACETAMOL [Concomitant]
     Route: 065
     Dates: start: 20080609, end: 20080609
  7. TRAMADOL HCL [Concomitant]
     Indication: PAIN
     Dosage: 375 MG Q6H PRN
     Route: 065
     Dates: start: 20080607, end: 20080609

REACTIONS (2)
  - METABOLIC ENCEPHALOPATHY [None]
  - TRANSAMINASES INCREASED [None]
